FAERS Safety Report 7399122-5 (Version None)
Quarter: 2011Q1

REPORT INFORMATION
  Report Type: 
  Country: None (occurrence: None)
  Receive Date: 20110328
  Receipt Date: 20110314
  Transmission Date: 20110831
  Serious: Yes (Death)
  Sender: FDA-Public Use
  Company Number: 2011001235

PATIENT
  Age: 67 Year
  Sex: Male

DRUGS (8)
  1. AMIKACIN [Concomitant]
  2. WARFARIN SODIUM [Concomitant]
  3. OXYCODONE (OXYCODONE) [Concomitant]
  4. ERLOTINIB (ERLOTINIB) (TABLET) (ERLOTINIB) [Suspect]
     Indication: NON-SMALL CELL LUNG CANCER
     Dosage: 150 MG, DAILY, ORAL
     Route: 048
     Dates: start: 20091205, end: 20091213
  5. METRONIDAZOLE [Concomitant]
  6. TAZOBACTAM [Concomitant]
  7. ACEBROPHYLLINE [Concomitant]
  8. FUROSEMIDE [Concomitant]

REACTIONS (1)
  - DYSPNOEA [None]
